FAERS Safety Report 6652834-0 (Version None)
Quarter: 2010Q1

REPORT INFORMATION
  Report Type: 
  Country: None (occurrence: None)
  Receive Date: 20100326
  Receipt Date: 20100325
  Transmission Date: 20100710
  Serious: Yes (Death)
  Sender: FDA-Public Use
  Company Number: JP-ELI_LILLY_AND_COMPANY-JP200912002848

PATIENT
  Sex: Male
  Weight: 70 kg

DRUGS (6)
  1. SOMATROPIN [Suspect]
     Indication: GROWTH HORMONE DEFICIENCY
     Dosage: 0.1 MG, DAILY (1/D)
     Route: 058
     Dates: start: 20060725, end: 20060731
  2. SOMATROPIN [Suspect]
     Dosage: 0.2 MG, DAILY (1/D)
     Route: 058
     Dates: start: 20060801, end: 20061026
  3. SOMATROPIN [Suspect]
     Dosage: 0.3 MG, DAILY (1/D)
     Route: 058
     Dates: start: 20061027, end: 20090101
  4. CORTONE [Concomitant]
     Indication: SECONDARY ADRENOCORTICAL INSUFFICIENCY
     Dosage: 50 MG, UNK
     Route: 048
     Dates: start: 20050317
  5. THYRADIN S [Concomitant]
     Indication: SECONDARY HYPOTHYROIDISM
     Dosage: 75 UG, UNK
     Route: 048
     Dates: start: 20050317
  6. DESMOPRESSIN /00361902/ [Concomitant]
     Indication: DIABETES INSIPIDUS
     Dosage: 5 UG, UNK
     Route: 045
     Dates: start: 20060317

REACTIONS (1)
  - DEATH [None]
